FAERS Safety Report 6519410-1 (Version None)
Quarter: 2009Q4

REPORT INFORMATION
  Report Type: 
  Country: None (occurrence: None)
  Receive Date: 20091228
  Receipt Date: 20091217
  Transmission Date: 20100525
  Serious: Yes (Hospitalization)
  Sender: FDA-Public Use
  Company Number: JP-MERCK-0912USA02519

PATIENT
  Age: 11 Year

DRUGS (3)
  1. SINGULAIR [Suspect]
     Route: 048
  2. CLARITH [Concomitant]
     Route: 048
  3. MEDICON [Concomitant]
     Route: 048

REACTIONS (1)
  - HEPATITIS [None]
